FAERS Safety Report 10017363 (Version 2)
Quarter: 2014Q1

REPORT INFORMATION
  Report Type: Spontaneous
  Country: US (occurrence: US)
  Receive Date: 20140318
  Receipt Date: 20140318
  Transmission Date: 20141002
  Serious: Yes (Disabling)
  Sender: FDA-Public Use
  Company Number: US-GE HEALTHCARE MEDICAL DIAGNOSTICS-OSCN-PR-0808S-0510

PATIENT
  Age: 71 Year
  Sex: Female

DRUGS (5)
  1. OMNISCAN [Suspect]
     Indication: LOCAL SWELLING
     Route: 042
     Dates: start: 20060329, end: 20060329
  2. OMNISCAN [Suspect]
     Indication: LOCAL SWELLING
     Route: 042
     Dates: start: 20060805, end: 20060805
  3. OMNISCAN [Suspect]
     Indication: LOCAL SWELLING
     Route: 042
     Dates: start: 20061218, end: 20061218
  4. OMNISCAN [Suspect]
     Indication: LOCAL SWELLING
     Route: 042
     Dates: start: 20060322, end: 20060322
  5. EPOGEN [Concomitant]

REACTIONS (1)
  - Nephrogenic systemic fibrosis [Not Recovered/Not Resolved]
